FAERS Safety Report 25157629 (Version 2)
Quarter: 2025Q2

REPORT INFORMATION
  Report Type: Report from Study
  Country: US (occurrence: US)
  Receive Date: 20250403
  Receipt Date: 20250519
  Transmission Date: 20250716
  Serious: Yes (Hospitalization, Other)
  Sender: BAYER HEALTHCARE PHARMACEUTICALS INC.
  Company Number: US-BAYER-2025A044793

PATIENT
  Age: 53 Year
  Sex: Male

DRUGS (3)
  1. ADEMPAS [Suspect]
     Active Substance: RIOCIGUAT
     Indication: Pulmonary arterial hypertension
  2. ADEMPAS [Suspect]
     Active Substance: RIOCIGUAT
     Indication: Pulmonary arterial hypertension
     Dosage: 2.5 MG, TID
     Route: 048
     Dates: start: 202502
  3. OPSUMIT [Concomitant]
     Active Substance: MACITENTAN

REACTIONS (7)
  - Fluid retention [None]
  - Laboratory test abnormal [Recovered/Resolved]
  - Dyspnoea [None]
  - General physical health deterioration [None]
  - Peripheral swelling [None]
  - Joint swelling [None]
  - Weight abnormal [Recovering/Resolving]

NARRATIVE: CASE EVENT DATE: 20250325
